FAERS Safety Report 15028025 (Version 1)
Quarter: 2018Q2

REPORT INFORMATION
  Report Type: Spontaneous
  Country: US (occurrence: US)
  Receive Date: 20180619
  Receipt Date: 20180619
  Transmission Date: 20180711
  Serious: Yes (Death, Hospitalization, Other)
  Sender: FDA-Public Use
  Company Number: US-ADIENNEP-2018AD000323

PATIENT
  Age: 20 Year
  Sex: Male

DRUGS (4)
  1. MELPHALAN. [Suspect]
     Active Substance: MELPHALAN
     Indication: STEM CELL TRANSPLANT
     Dosage: 140 MG/M2
  2. FLUDARABINE [Suspect]
     Active Substance: FLUDARABINE PHOSPHATE
     Indication: STEM CELL TRANSPLANT
     Dosage: 200 MG/M2
  3. ANTITHYMOCYTE IMMUNOGLOBULIN (RABBIT) [Suspect]
     Active Substance: LAPINE T-LYMPHOCYTE IMMUNE GLOBULIN
     Indication: STEM CELL TRANSPLANT
     Dosage: 3.5 MG/KG
  4. THIOTEPA. [Suspect]
     Active Substance: THIOTEPA
     Indication: STEM CELL TRANSPLANT
     Dosage: 10 MG/KG

REACTIONS (17)
  - Right ventricular failure [Fatal]
  - Respiratory failure [Unknown]
  - Left ventricular dysfunction [Unknown]
  - Renal failure [Unknown]
  - Pneumonia cytomegaloviral [Fatal]
  - Cytomegalovirus viraemia [Unknown]
  - Multiple organ dysfunction syndrome [Unknown]
  - Cytokine storm [Unknown]
  - Human herpesvirus 6 infection [Unknown]
  - Respiratory syncytial virus infection [Unknown]
  - Epstein-Barr viraemia [Unknown]
  - Pulmonary arterial hypertension [Unknown]
  - Thrombotic microangiopathy [Fatal]
  - Pulmonary veno-occlusive disease [Fatal]
  - Epstein-Barr virus infection [Unknown]
  - Cytomegalovirus infection [Unknown]
  - Acute respiratory distress syndrome [Unknown]
